FAERS Safety Report 23266218 (Version 3)
Quarter: 2024Q1

REPORT INFORMATION
  Report Type: Report from Study
  Country: CO (occurrence: CO)
  Receive Date: 20231206
  Receipt Date: 20240322
  Transmission Date: 20240409
  Serious: Yes (Other)
  Sender: FDA-Public Use
  Company Number: CO-BAYER-2022A154269

PATIENT
  Sex: Male

DRUGS (8)
  1. EYLEA [Suspect]
     Active Substance: AFLIBERCEPT
     Indication: Diabetic retinal oedema
     Dosage: 2 MG, BOTH EYES, 40 MG/ML
     Route: 031
     Dates: start: 20220914, end: 20220914
  2. EYLEA [Suspect]
     Active Substance: AFLIBERCEPT
     Dosage: 2 MG, BOTH EYES, 40 MG/ML
     Route: 031
     Dates: start: 20221129, end: 20221129
  3. EYLEA [Suspect]
     Active Substance: AFLIBERCEPT
     Dosage: 2 MG, BOTH EYES, 40 MG/ML
     Route: 031
     Dates: start: 20230213, end: 20230213
  4. EYLEA [Suspect]
     Active Substance: AFLIBERCEPT
     Dosage: 2 MG, RIGHT EYE , 40 MG/ML
     Route: 031
     Dates: start: 20230516, end: 20230516
  5. EYLEA [Suspect]
     Active Substance: AFLIBERCEPT
     Dosage: 2 MG, RIGHT EYE , 40 MG/ML
     Route: 031
     Dates: start: 20230717, end: 20230717
  6. EYLEA [Suspect]
     Active Substance: AFLIBERCEPT
     Dosage: 2 MG, RIGHT EYE , 40 MG/ML
     Route: 031
     Dates: start: 20230906, end: 20230906
  7. EYLEA [Suspect]
     Active Substance: AFLIBERCEPT
     Dosage: 2 MG MONTHLY FOR 5 MONTHS, THEN EVERY 2 MONTHS THEREAFTER ,  40 MG/ML
     Route: 031
     Dates: start: 20231220, end: 20231220
  8. EYLEA [Suspect]
     Active Substance: AFLIBERCEPT
     Dosage: 2 MG,LEFT EYE, 40 MG/ML
     Route: 031
     Dates: start: 20240228

REACTIONS (5)
  - Eye haemorrhage [Not Recovered/Not Resolved]
  - Eye haemorrhage [Recovered/Resolved]
  - Inappropriate schedule of product administration [Not Recovered/Not Resolved]
  - Inappropriate schedule of product administration [Not Recovered/Not Resolved]
  - Inappropriate schedule of product administration [Not Recovered/Not Resolved]

NARRATIVE: CASE EVENT DATE: 20220914
